FAERS Safety Report 6284699-3 (Version None)
Quarter: 2009Q3

REPORT INFORMATION
  Report Type: 
  Country: None (occurrence: None)
  Receive Date: 20090727
  Receipt Date: 20090713
  Transmission Date: 20100115
  Serious: Yes (Hospitalization, Other)
  Sender: FDA-Public Use
  Company Number: US-ELI_LILLY_AND_COMPANY-US200907002727

PATIENT
  Sex: Female

DRUGS (7)
  1. CYMBALTA [Suspect]
     Dosage: 30 MG, UNK
     Dates: start: 20050923, end: 20050923
  2. LOPRESSOR [Concomitant]
  3. LUNESTA [Concomitant]
  4. PREMARIN [Concomitant]
  5. SINGULAIR [Concomitant]
  6. PULMICORT-100 [Concomitant]
  7. PROVERA [Concomitant]

REACTIONS (21)
  - AGITATION [None]
  - AMNESIA [None]
  - ASTHENIA [None]
  - BLOOD ELECTROLYTES ABNORMAL [None]
  - BLOOD POTASSIUM ABNORMAL [None]
  - BLOOD SODIUM DECREASED [None]
  - CERVICAL VERTEBRAL FRACTURE [None]
  - DRY MOUTH [None]
  - EATING DISORDER [None]
  - FEELING ABNORMAL [None]
  - GRAND MAL CONVULSION [None]
  - INSOMNIA [None]
  - JAW FRACTURE [None]
  - MASTICATION DISORDER [None]
  - MUSCLE SPASMS [None]
  - NAUSEA [None]
  - PAIN [None]
  - RESTLESSNESS [None]
  - SOMNOLENCE [None]
  - SPEECH DISORDER [None]
  - VOMITING [None]
